FAERS Safety Report 7689972-X (Version None)
Quarter: 2011Q3

REPORT INFORMATION
  Report Type: 
  Country: None (occurrence: None)
  Receive Date: 20110818
  Receipt Date: 20110811
  Transmission Date: 20111222
  Serious: No
  Sender: FDA-Public Use
  Company Number: US-BIOGENIDEC-2011BI030690

PATIENT
  Age: 31 Year
  Sex: Female

DRUGS (3)
  1. TYSABRI [Suspect]
     Indication: MULTIPLE SCLEROSIS
     Route: 042
     Dates: start: 20110401
  2. ANTIDEPRESSANT (NOS) [Concomitant]
     Indication: SOMNOLENCE
     Dates: start: 20110101
  3. REBIF [Concomitant]
     Dates: start: 20091101, end: 20110101

REACTIONS (3)
  - FEELING HOT [None]
  - PAIN IN EXTREMITY [None]
  - BACK PAIN [None]
